FAERS Safety Report 6939622-2 (Version None)
Quarter: 2010Q3

REPORT INFORMATION
  Report Type: 
  Country: None (occurrence: None)
  Receive Date: 20100820
  Receipt Date: 20100816
  Transmission Date: 20110219
  Serious: Yes (Hospitalization)
  Sender: FDA-Public Use
  Company Number: A-CH2010-36421

PATIENT
  Age: 64 Year
  Sex: Female
  Weight: 42 kg

DRUGS (4)
  1. TRACLEER [Suspect]
     Indication: PULMONARY ARTERIAL HYPERTENSION
     Dosage: 62.5 MG, BID, ORAL, 62.5 MG,QD, ORAL
     Route: 048
     Dates: start: 20100315, end: 20100325
  2. TRACLEER [Suspect]
     Indication: PULMONARY ARTERIAL HYPERTENSION
     Dosage: 62.5 MG, BID, ORAL, 62.5 MG,QD, ORAL
     Route: 048
     Dates: start: 20100326, end: 20100329
  3. BERAPROST SODIUM (BERAPROST SODIUM) [Concomitant]
  4. TOCOPHERYL NICOTINATE (TOCOPHERYL NICOTINATE) [Concomitant]

REACTIONS (8)
  - CARDIAC FAILURE [None]
  - CONDITION AGGRAVATED [None]
  - DIALYSIS [None]
  - INTERSTITIAL LUNG DISEASE [None]
  - OFF LABEL USE [None]
  - PLEURAL EFFUSION [None]
  - RESPIRATORY DISORDER [None]
  - SCLERODERMA RENAL CRISIS [None]
